FAERS Safety Report 16460820 (Version 11)
Quarter: 2019Q4

REPORT INFORMATION
  Report Type: Report from Study
  Country: US (occurrence: US)
  Receive Date: 20190620
  Receipt Date: 20191105
  Transmission Date: 20200122
  Serious: Yes (Hospitalization, Other)
  Sender: FDA-Public Use
  Company Number: US-JNJFOC-20190606298

PATIENT
  Age: 78 Year
  Sex: Female

DRUGS (25)
  1. IMBRUVICA [Suspect]
     Active Substance: IBRUTINIB
     Indication: CHRONIC LYMPHOCYTIC LEUKAEMIA
     Dosage: 420 MG, QD
     Route: 048
     Dates: start: 20190515
  2. MULTIVITAMINS [Concomitant]
     Active Substance: VITAMINS
  3. PREVACID [Concomitant]
     Active Substance: LANSOPRAZOLE
  4. VITAMIN D NOS [Concomitant]
     Active Substance: VITAMIN D NOS
  5. TRAMADOL HYDROCHLORIDE. [Concomitant]
     Active Substance: TRAMADOL HYDROCHLORIDE
  6. TRAMADOL HYDROCHLORIDE. [Suspect]
     Active Substance: TRAMADOL HYDROCHLORIDE
     Indication: PRODUCT USED FOR UNKNOWN INDICATION
     Route: 065
  7. PROZAC [Concomitant]
     Active Substance: FLUOXETINE HYDROCHLORIDE
  8. EUCERIN                            /00021201/ [Concomitant]
     Active Substance: SALICYLIC ACID
  9. SUDAFED [Concomitant]
     Active Substance: PSEUDOEPHEDRINE HYDROCHLORIDE
  10. MIRALAX [Concomitant]
     Active Substance: POLYETHYLENE GLYCOL 3350
  11. CORICIDIN HBP COLD AND FLU [Concomitant]
     Active Substance: ACETAMINOPHEN\CHLORPHENIRAMINE MALEATE
  12. FLUTICASONE PROPIONATE. [Concomitant]
     Active Substance: FLUTICASONE PROPIONATE
  13. CITRACAL PETITIES [Concomitant]
  14. ALEVE [Concomitant]
     Active Substance: NAPROXEN SODIUM
  15. RALOXIFENE HYDROCHLORIDE. [Concomitant]
     Active Substance: RALOXIFENE HYDROCHLORIDE
  16. IMBRUVICA [Suspect]
     Active Substance: IBRUTINIB
     Dosage: 420 MG, QD
     Route: 048
     Dates: start: 20190518
  17. IMBRUVICA [Suspect]
     Active Substance: IBRUTINIB
     Dosage: 420 MG, QD
     Route: 048
     Dates: start: 20190522
  18. LISINOPRIL. [Concomitant]
     Active Substance: LISINOPRIL
  19. IPRATROPIUM BROMIDE. [Concomitant]
     Active Substance: IPRATROPIUM BROMIDE
  20. ZITHROMAX [Concomitant]
     Active Substance: AZITHROMYCIN DIHYDRATE
  21. MAGNESIUM CITRATE. [Concomitant]
     Active Substance: MAGNESIUM CITRATE
  22. LYRICA [Suspect]
     Active Substance: PREGABALIN
     Indication: PRODUCT USED FOR UNKNOWN INDICATION
     Route: 065
  23. CYANOCOBALAMIN W/PYRIDOXINE/THIAMINE [Concomitant]
  24. XANAX [Concomitant]
     Active Substance: ALPRAZOLAM
  25. LEVOTHYROXINE SODIUM. [Concomitant]
     Active Substance: LEVOTHYROXINE SODIUM

REACTIONS (14)
  - Fibromyalgia [Not Recovered/Not Resolved]
  - Nasal ulcer [Unknown]
  - Fatigue [Not Recovered/Not Resolved]
  - Flatulence [Unknown]
  - Rhinorrhoea [Unknown]
  - Faecaloma [Unknown]
  - Loss of consciousness [Unknown]
  - Hypersomnia [Unknown]
  - Sinusitis [Unknown]
  - Gastrointestinal motility disorder [Unknown]
  - Constipation [Not Recovered/Not Resolved]
  - Nasal dryness [Recovering/Resolving]
  - Acne [Unknown]
  - Abdominal pain [Unknown]

NARRATIVE: CASE EVENT DATE: 201905
